FAERS Safety Report 5476980-2 (Version None)
Quarter: 2007Q4

REPORT INFORMATION
  Report Type: 
  Country: None (occurrence: None)
  Receive Date: 20071003
  Receipt Date: 20071003
  Transmission Date: 20080405
  Serious: Yes (Hospitalization)
  Sender: FDA-Public Use
  Company Number: None

PATIENT
  Sex: Male
  Weight: 85.09 kg

DRUGS (1)
  1. TEMOZOLOMIDE [Suspect]
     Dosage: 5400 MG

REACTIONS (2)
  - BLINDNESS TRANSIENT [None]
  - BLINDNESS UNILATERAL [None]
